FAERS Safety Report 11473132 (Version 1)
Quarter: 2015Q3

REPORT INFORMATION
  Report Type: Spontaneous
  Country: FR (occurrence: FR)
  Receive Date: 20150908
  Receipt Date: 20150908
  Transmission Date: 20151125
  Serious: Yes (Other)
  Sender: FDA-Public Use
  Company Number: FR-JAZZ-JPI-P-010717

PATIENT
  Age: 78 Year
  Sex: Female
  Weight: 74 kg

DRUGS (7)
  1. VENLAFAXINE [Concomitant]
     Active Substance: VENLAFAXINE HYDROCHLORIDE
     Indication: HYPERAESTHESIA
     Dosage: 75 MG, UNK
  2. XYREM [Suspect]
     Active Substance: SODIUM OXYBATE
     Dosage: 3 G, BID
     Route: 048
     Dates: start: 20101115, end: 20101214
  3. XYREM [Suspect]
     Active Substance: SODIUM OXYBATE
     Indication: CATAPLEXY
     Dosage: 2.5 G, BID
     Route: 048
     Dates: start: 20100323, end: 2010
  4. PREGABALIN. [Concomitant]
     Active Substance: PREGABALIN
     Indication: HYPERAESTHESIA
     Dosage: UNK
  5. XYREM [Suspect]
     Active Substance: SODIUM OXYBATE
     Indication: NARCOLEPSY
     Dosage: 2.25 G, BID
     Route: 048
     Dates: start: 20100111, end: 20100322
  6. XYREM [Suspect]
     Active Substance: SODIUM OXYBATE
     Dosage: 2.25 G, BID
     Route: 048
     Dates: start: 201202, end: 20120920
  7. XYREM [Suspect]
     Active Substance: SODIUM OXYBATE
     Dosage: 2.25 G, BID
     Route: 048
     Dates: start: 20140519

REACTIONS (16)
  - Hallucination [Unknown]
  - Feeling cold [Recovered/Resolved]
  - Blood pressure systolic increased [Recovered/Resolved]
  - Hyperaesthesia [Unknown]
  - Fatigue [Unknown]
  - Nasal discomfort [Unknown]
  - Hypertension [Unknown]
  - Decreased appetite [Unknown]
  - Flushing [Unknown]
  - Muscle spasms [Recovered/Resolved]
  - Tension [Unknown]
  - Nightmare [Recovered/Resolved]
  - Weight decreased [Unknown]
  - Respiratory disorder [Recovered/Resolved]
  - Chest pain [Recovered/Resolved]
  - Peripheral coldness [Recovered/Resolved]

NARRATIVE: CASE EVENT DATE: 20100116
